FAERS Safety Report 12569757 (Version 17)
Quarter: 2017Q3

REPORT INFORMATION
  Report Type: Report from Study
  Country: DE (occurrence: DE)
  Receive Date: 20160719
  Receipt Date: 20170911
  Transmission Date: 20171127
  Serious: Yes (Hospitalization)
  Sender: FDA-Public Use
  Company Number: DE-ROCHE-1780487

PATIENT
  Age: 79 Year
  Sex: Male
  Weight: 82 kg

DRUGS (21)
  1. PACLITAXEL. [Suspect]
     Active Substance: PACLITAXEL
     Indication: NON-SMALL CELL LUNG CANCER STAGE IV
     Dosage: UNIT DOSE PER PROTOCOL. THE MOST RECENT DOSE OF PACLITAXEL WAS 384 MG ON PRIOR TO DEHYDRATION AND DI
     Route: 042
     Dates: start: 20160614
  2. NOVALGIN (GERMANY) [Concomitant]
     Indication: BACK PAIN
     Route: 065
     Dates: start: 20160621
  3. TAZOBAC [Concomitant]
     Active Substance: PIPERACILLIN SODIUM\TAZOBACTAM SODIUM
     Route: 065
     Dates: start: 20160803, end: 20160808
  4. BEVACIZUMAB. [Suspect]
     Active Substance: BEVACIZUMAB
     Indication: NON-SMALL CELL LUNG CANCER STAGE IV
     Dosage: UNIT DOSE PER PROTOCOL. THE MOST RECENT DOSE OF BEVACIZUMAB WAS 1200 MG PRIOR TO DIARRHEA WAS TAKEN
     Route: 042
     Dates: start: 20160614
  5. CARBOPLATIN. [Suspect]
     Active Substance: CARBOPLATIN
     Indication: NON-SMALL CELL LUNG CANCER STAGE IV
     Dosage: DOSE PER PROTOCOL: AUC = 6 MG/ML/MIN. THE MOST RECENT DOSE OF CARBOPLATIN WAS 408 MG PRIOR TO DIARRH
     Route: 042
     Dates: start: 20160614
  6. PANTOZOL (GERMANY) [Concomitant]
     Indication: GASTRITIS
     Route: 065
     Dates: start: 201605
  7. KALINOR BRAUSE [Concomitant]
     Indication: HYPOKALAEMIA
     Route: 065
     Dates: start: 20160622
  8. HYDROCHLOROTHIAZIDE. [Concomitant]
     Active Substance: HYDROCHLOROTHIAZIDE
     Indication: HYPERTENSION
     Route: 065
     Dates: start: 2014
  9. GRANISETRON [Concomitant]
     Active Substance: GRANISETRON
     Indication: PROPHYLACTIC CHEMOTHERAPY
     Route: 065
     Dates: start: 20160614
  10. RANITIDIN [Concomitant]
     Active Substance: RANITIDINE HYDROCHLORIDE
     Indication: PROPHYLACTIC CHEMOTHERAPY
     Route: 065
     Dates: start: 20160614
  11. GUTRON [Concomitant]
     Active Substance: MIDODRINE
     Route: 065
     Dates: start: 20160803
  12. ARIXTRA [Concomitant]
     Active Substance: FONDAPARINUX SODIUM
  13. CELIPROLOL [Concomitant]
     Active Substance: CELIPROLOL
     Indication: HYPERTENSION
     Route: 065
     Dates: start: 2011
  14. ATEZOLIZUMAB. [Suspect]
     Active Substance: ATEZOLIZUMAB
     Indication: NON-SMALL CELL LUNG CANCER STAGE IV
     Dosage: FIXED DOSE PER PROTOCOL. THE MOST RECENT DOSE OF ATEZOLIZUMAB 1200 MG PRIOR TO DIARRHEA WAS ON 14/JU
     Route: 042
     Dates: start: 20160614
  15. HEPARIN [Concomitant]
     Active Substance: HEPARIN SODIUM
     Route: 058
  16. TELMISARTAN. [Concomitant]
     Active Substance: TELMISARTAN
     Indication: HYPERTENSION
     Route: 065
     Dates: start: 2014
  17. DEXAMETHASON [Concomitant]
     Active Substance: DEXAMETHASONE
     Indication: PROPHYLACTIC CHEMOTHERAPY
     Route: 065
     Dates: start: 20160614
  18. CLEMASTIN [Concomitant]
     Active Substance: CLEMASTINE
     Indication: PROPHYLACTIC CHEMOTHERAPY
     Route: 065
     Dates: start: 20160614
  19. ALLOPURINOL [Concomitant]
     Indication: GOUT
     Route: 065
     Dates: start: 1957, end: 20160802
  20. HEPARIN [Concomitant]
     Active Substance: HEPARIN SODIUM
     Indication: RENAL FAILURE
     Route: 065
     Dates: start: 20160801
  21. TAZOBAC [Concomitant]
     Active Substance: PIPERACILLIN SODIUM\TAZOBACTAM SODIUM
     Route: 065
     Dates: start: 20160824, end: 20160905

REACTIONS (2)
  - Diarrhoea [Recovered/Resolved]
  - Intestinal haemorrhage [Not Recovered/Not Resolved]

NARRATIVE: CASE EVENT DATE: 20160620
